FAERS Safety Report 12642059 (Version 2)
Quarter: 2016Q3

REPORT INFORMATION
  Report Type: Spontaneous
  Country: EG (occurrence: EG)
  Receive Date: 20160810
  Receipt Date: 20160831
  Transmission Date: 20161109
  Serious: Yes (Hospitalization, Other)
  Sender: FDA-Public Use
  Company Number: EG-GILEAD-2016-0226451

PATIENT
  Age: 54 Year
  Sex: Male

DRUGS (1)
  1. HARVONI [Suspect]
     Active Substance: LEDIPASVIR\SOFOSBUVIR
     Indication: HEPATITIS C
     Dosage: 1 DF, QD
     Route: 048
     Dates: start: 201607, end: 201607

REACTIONS (4)
  - Depressed level of consciousness [Recovered/Resolved]
  - Hepatic encephalopathy [Recovered/Resolved]
  - Hepatic cirrhosis [Unknown]
  - Coma hepatic [Unknown]

NARRATIVE: CASE EVENT DATE: 201607
